FAERS Safety Report 7844673-X (Version None)
Quarter: 2011Q4

REPORT INFORMATION
  Report Type: 
  Country: None (occurrence: None)
  Receive Date: 20111025
  Receipt Date: 20111019
  Transmission Date: 20120403
  Serious: Yes (Other)
  Sender: FDA-Public Use
  Company Number: US-CEPHALON-2011005093

PATIENT
  Sex: Male

DRUGS (4)
  1. NUVIGIL [Suspect]
     Indication: CATAPLEXY
  2. ADDERALL 5 [Concomitant]
  3. NUVIGIL [Suspect]
     Indication: NARCOLEPSY
     Route: 048
     Dates: start: 20090731, end: 20110801
  4. XYREM [Concomitant]

REACTIONS (1)
  - ANAPHYLACTIC REACTION [None]
